FAERS Safety Report 4997004-7 (Version None)
Quarter: 2006Q2

REPORT INFORMATION
  Report Type: 
  Country: None (occurrence: None)
  Receive Date: 20060505
  Receipt Date: 20060419
  Transmission Date: 20061013
  Serious: Yes (Death, Hospitalization, Other)
  Sender: FDA-Public Use
  Company Number: US-2006-000066

PATIENT
  Age: 50 Year
  Sex: Male

DRUGS (2)
  1. BETASERON [Suspect]
     Indication: SECONDARY PROGRESSIVE MULTIPLE SCLEROSIS
     Dosage: SUBCUTANEOUS
     Route: 058
     Dates: start: 19950228, end: 20000804
  2. COUMADIN [Suspect]
     Indication: AORTIC VALVE REPLACEMENT
     Dosage: 7.5  MG, 1X/DAY, ORAL
     Route: 048
     Dates: end: 20000727

REACTIONS (3)
  - CEREBRAL HAEMORRHAGE [None]
  - COAGULOPATHY [None]
  - SECONDARY PROGRESSIVE MULTIPLE SCLEROSIS [None]
